FAERS Safety Report 9031565 (Version 2)
Quarter: 2013Q2

REPORT INFORMATION
  Report Type: Spontaneous
  Country: US (occurrence: US)
  Receive Date: 20130124
  Receipt Date: 20130426
  Transmission Date: 20140414
  Serious: Yes (Other)
  Sender: FDA-Public Use
  Company Number: US-PFIZER INC-2013028175

PATIENT
  Age: 59 Year
  Sex: Female
  Weight: 72.6 kg

DRUGS (3)
  1. PREMARIN [Suspect]
     Indication: HORMONE REPLACEMENT THERAPY
     Dosage: 1.25 MG, 5X/WEEK
     Route: 048
  2. PREMARIN [Suspect]
     Dosage: 1.25 MG, 2X/WEEK
     Route: 048
  3. PREMARIN [Suspect]
     Dosage: 1.25 MG, 4X/DAY
     Route: 048

REACTIONS (2)
  - Vaginal haemorrhage [Recovering/Resolving]
  - Drug ineffective [Recovering/Resolving]
